FAERS Safety Report 13457882 (Version 2)
Quarter: 2017Q2

REPORT INFORMATION
  Report Type: Spontaneous
  Country: TR (occurrence: TR)
  Receive Date: 20170419
  Receipt Date: 20170508
  Transmission Date: 20170830
  Serious: Yes (Other)
  Sender: FDA-Public Use
  Company Number: TR-SUN PHARMACEUTICAL INDUSTRIES LTD-2017R1-138622

PATIENT
  Sex: Male

DRUGS (1)
  1. EXELON [Suspect]
     Active Substance: RIVASTIGMINE TARTRATE
     Indication: PRODUCT USED FOR UNKNOWN INDICATION
     Dosage: UNK
     Route: 048

REACTIONS (10)
  - Leukocytosis [Unknown]
  - Neutrophilia [Unknown]
  - Hyporeflexia [Unknown]
  - Hypotonic-hyporesponsive episode [Unknown]
  - Asthenia [Recovering/Resolving]
  - Toxicity to various agents [Unknown]
  - Accidental exposure to product [Unknown]
  - Somnolence [Unknown]
  - Hyperglycaemia [Unknown]
  - Cholinergic syndrome [Unknown]
